FAERS Safety Report 6018266-3 (Version None)
Quarter: 2008Q4

REPORT INFORMATION
  Report Type: 
  Country: None (occurrence: None)
  Receive Date: 20081223
  Receipt Date: 20081216
  Transmission Date: 20090506
  Serious: Yes (Other)
  Sender: FDA-Public Use
  Company Number: JP-BRISTOL-MYERS SQUIBB COMPANY-14450563

PATIENT

DRUGS (1)
  1. KENACORT [Suspect]
     Indication: MACULAR OEDEMA
     Route: 031

REACTIONS (3)
  - CATARACT [None]
  - INTRAOCULAR PRESSURE INCREASED [None]
  - MACULAR OEDEMA [None]
